FAERS Safety Report 18730062 (Version 2)
Quarter: 2021Q1

REPORT INFORMATION
  Report Type: Report from Study
  Country: US (occurrence: US)
  Receive Date: 20210112
  Receipt Date: 20210131
  Transmission Date: 20210419
  Serious: Yes (Death)
  Sender: FDA-Public Use
  Company Number: US-UCBSA-2021000575

PATIENT
  Age: 90 Year
  Sex: Female

DRUGS (1)
  1. LACOSAMIDE. [Suspect]
     Active Substance: LACOSAMIDE
     Indication: EPILEPSY
     Dosage: 1 DOSAGE FORM, 2X/DAY (BID)
     Dates: end: 20201225

REACTIONS (1)
  - Respiratory paralysis [Fatal]

NARRATIVE: CASE EVENT DATE: 20201231
